FAERS Safety Report 9369669 (Version 3)
Quarter: 2014Q1

REPORT INFORMATION
  Report Type: Report from Study
  Country: CA (occurrence: CA)
  Receive Date: 20130626
  Receipt Date: 20140206
  Transmission Date: 20141002
  Serious: Yes (Other)
  Sender: FDA-Public Use
  Company Number: CA-UCBSA-089470

PATIENT
  Age: 70 Year
  Sex: Female
  Weight: 63 kg

DRUGS (9)
  1. CIMZIA [Suspect]
     Indication: RHEUMATOID ARTHRITIS
     Route: 058
     Dates: start: 20110501, end: 20110529
  2. CIMZIA [Suspect]
     Indication: RHEUMATOID ARTHRITIS
     Route: 058
     Dates: start: 20110630, end: 2013
  3. MISCARDIS [Concomitant]
     Indication: HYPERTENSION
     Route: 048
  4. BISOPROLOL [Concomitant]
     Indication: HYPERTENSION
     Route: 048
  5. RISEDRONATE [Concomitant]
     Indication: OSTEOPOROSIS
     Route: 048
  6. ASA [Concomitant]
     Indication: ANTICOAGULANT THERAPY
     Route: 048
  7. ASA [Concomitant]
     Indication: PROPHYLAXIS
     Route: 048
  8. TRAZADONE [Concomitant]
     Indication: INSOMNIA
     Route: 048
  9. TYLENOL [Concomitant]

REACTIONS (12)
  - Angina pectoris [Not Recovered/Not Resolved]
  - Nerve compression [Not Recovered/Not Resolved]
  - Viral infection [Unknown]
  - Urinary tract infection [Unknown]
  - Vertigo [Not Recovered/Not Resolved]
  - Cystitis [Recovered/Resolved]
  - Fungal infection [Recovered/Resolved]
  - Lichen sclerosus [Recovering/Resolving]
  - Cellulitis [Unknown]
  - Balance disorder [Unknown]
  - Feeling abnormal [Unknown]
  - Joint swelling [Recovering/Resolving]
